FAERS Safety Report 22246268 (Version 2)
Quarter: 2023Q2

REPORT INFORMATION
  Report Type: Spontaneous
  Country: US (occurrence: US)
  Receive Date: 20230424
  Receipt Date: 20230608
  Transmission Date: 20230721
  Serious: Yes (Other)
  Sender: FDA-Public Use
  Company Number: US-UPSHER-SMITH LABORATORIES, LLC-2023USL00343

PATIENT
  Age: 14 Year
  Sex: Female
  Weight: 64.989 kg

DRUGS (2)
  1. MYORISAN [Suspect]
     Active Substance: ISOTRETINOIN
     Indication: Acne cystic
     Dosage: 40 MG, 1X/DAY
     Route: 048
     Dates: start: 20221230, end: 20230208
  2. MYORISAN [Suspect]
     Active Substance: ISOTRETINOIN
     Indication: Acne

REACTIONS (3)
  - Anxiety [Recovered/Resolved]
  - Stress [Recovered/Resolved]
  - Inappropriate schedule of product administration [Recovered/Resolved]

NARRATIVE: CASE EVENT DATE: 20221230
